FAERS Safety Report 7368982-6 (Version None)
Quarter: 2011Q1

REPORT INFORMATION
  Report Type: 
  Country: None (occurrence: None)
  Receive Date: 20110323
  Receipt Date: 20110314
  Transmission Date: 20110831
  Serious: Yes (Death, Hospitalization)
  Sender: FDA-Public Use
  Company Number: US-CELGENEUS-163-21880-11030570

PATIENT
  Sex: Male
  Weight: 105 kg

DRUGS (19)
  1. REVLIMID [Suspect]
     Dosage: 50 MILLIGRAM
     Route: 048
     Dates: start: 20101217, end: 20110106
  2. VIDAZA [Suspect]
     Dosage: 75 MILLIGRAM/SQ. METER
     Route: 058
     Dates: start: 20101029, end: 20101104
  3. PROSCAR [Concomitant]
     Indication: URINARY RETENTION
     Dosage: 5 MILLIGRAM
     Route: 065
  4. VANCOMYCIN [Concomitant]
     Route: 048
     Dates: start: 20110101
  5. FLOMAX [Concomitant]
  6. SOTALOL HCL [Concomitant]
     Indication: ATRIAL FIBRILLATION
     Dosage: 80 MILLIGRAM
     Route: 065
  7. DIGOXIN [Concomitant]
     Route: 065
     Dates: start: 20110101
  8. FLOMAX [Concomitant]
     Indication: URINARY RETENTION
     Dosage: .4 MILLIGRAM
     Route: 065
  9. DOCUSATE SODIUM [Concomitant]
     Dosage: 100 MILLIGRAM
     Route: 065
  10. MILK OF MAGNESIA TAB [Concomitant]
     Route: 065
  11. NEUPOGEN [Concomitant]
     Indication: PANCYTOPENIA
     Dosage: 480 MICROGRAM
     Route: 058
     Dates: start: 20110101
  12. FLAGYL [Concomitant]
     Dosage: 500 MILLIGRAM
     Route: 048
     Dates: start: 20110101
  13. PROSCAR [Concomitant]
  14. ERTAPENEM [Concomitant]
     Route: 065
     Dates: start: 20110112
  15. REVLIMID [Suspect]
     Dosage: 50 MILLIGRAM
     Route: 048
     Dates: start: 20101105, end: 20101125
  16. VIDAZA [Suspect]
     Dosage: 75 MILLIGRAM/SQ. METER
     Route: 058
     Dates: start: 20101210, end: 20101216
  17. ACETAMINOPHEN [Concomitant]
     Route: 065
  18. CIPROFLOXACIN [Concomitant]
     Route: 065
     Dates: start: 20101101, end: 20101101
  19. BLOOD TRANSFUSION [Concomitant]
     Indication: PANCYTOPENIA
     Route: 051
     Dates: start: 20110101

REACTIONS (2)
  - ACUTE RESPIRATORY FAILURE [None]
  - ACUTE MYELOID LEUKAEMIA [None]
